FAERS Safety Report 18680006 (Version 4)
Quarter: 2022Q2

REPORT INFORMATION
  Report Type: Spontaneous
  Country: US (occurrence: US)
  Receive Date: 20201229
  Receipt Date: 20220609
  Transmission Date: 20220721
  Serious: Yes (Hospitalization, Other)
  Sender: FDA-Public Use
  Company Number: US-CLOVIS ONCOLOGY-CLO-2020-001415

PATIENT
  Sex: Female

DRUGS (5)
  1. RUBRACA [Suspect]
     Active Substance: RUCAPARIB CAMSYLATE
     Indication: Ovarian cancer
     Dosage: 600 MG, BID
     Route: 048
     Dates: start: 202004, end: 20200716
  2. RUBRACA [Suspect]
     Active Substance: RUCAPARIB CAMSYLATE
     Dosage: 150 MG IN MORNING AND 150 MG AT NIGHT
     Route: 048
     Dates: start: 20200729, end: 20200807
  3. RUBRACA [Suspect]
     Active Substance: RUCAPARIB CAMSYLATE
     Dosage: UNK
     Dates: end: 20201201
  4. RUBRACA [Suspect]
     Active Substance: RUCAPARIB CAMSYLATE
     Dosage: 600 MG, BID
     Route: 048
     Dates: start: 202101
  5. RUBRACA [Suspect]
     Active Substance: RUCAPARIB CAMSYLATE
     Dosage: 300 MG, BID
     Route: 048
     Dates: end: 20210421

REACTIONS (11)
  - Coronavirus infection [Recovered/Resolved]
  - Appendicitis [Unknown]
  - Ovarian cancer recurrent [Unknown]
  - Carbohydrate antigen 125 increased [Unknown]
  - Drug intolerance [Unknown]
  - Eating disorder [Recovered/Resolved]
  - Feeling abnormal [Unknown]
  - Adverse event [Unknown]
  - Vomiting [Recovered/Resolved]
  - Asthenia [Unknown]
  - Malaise [Unknown]

NARRATIVE: CASE EVENT DATE: 20200101
